FAERS Safety Report 10954645 (Version 1)
Quarter: 2015Q1

REPORT INFORMATION
  Report Type: Spontaneous
  Country: DE (occurrence: DE)
  Receive Date: 20150325
  Receipt Date: 20150325
  Transmission Date: 20150721
  Serious: Yes (Disabling, Other)
  Sender: FDA-Public Use
  Company Number: DE-TEVA-548310GER

PATIENT
  Sex: Female

DRUGS (1)
  1. METHOTREXATE [Suspect]
     Active Substance: METHOTREXATE
     Indication: RHEUMATOID ARTHRITIS
     Dosage: AT FIRST 20 MG THEN 10 MG
     Route: 065
     Dates: start: 2002, end: 2008

REACTIONS (7)
  - Skin disorder [Unknown]
  - Pallor [Unknown]
  - Loss of consciousness [Unknown]
  - Haematoma [Unknown]
  - Amputation [Unknown]
  - Hyperhidrosis [Unknown]
  - Quality of life decreased [Unknown]

NARRATIVE: CASE EVENT DATE: 2007
